FAERS Safety Report 15154816 (Version 1)
Quarter: 2018Q3

REPORT INFORMATION
  Report Type: Spontaneous
  Country: US (occurrence: US)
  Receive Date: 20180620
  Receipt Date: 20180620
  Transmission Date: 20181010
  Serious: Yes (Hospitalization)
  Sender: FDA-Public Use
  Company Number: None

PATIENT
  Age: 69 Year
  Sex: Male

DRUGS (4)
  1. VITAMIN D [Concomitant]
     Active Substance: CHOLECALCIFEROL
  2. TYLENOL [Concomitant]
     Active Substance: ACETAMINOPHEN
  3. CAPECITABINE 500MG [Suspect]
     Active Substance: CAPECITABINE
     Indication: COLON CANCER
  4. ASPIRIN. [Concomitant]
     Active Substance: ASPIRIN

REACTIONS (4)
  - Nausea [None]
  - Hot flush [None]
  - Sepsis [None]
  - Hypoaesthesia [None]
